FAERS Safety Report 7369345-X (Version None)
Quarter: 2011Q1

REPORT INFORMATION
  Report Type: 
  Country: None (occurrence: None)
  Receive Date: 20110323
  Receipt Date: 20110315
  Transmission Date: 20110831
  Serious: Yes (Hospitalization)
  Sender: FDA-Public Use
  Company Number: Z0008431A

PATIENT
  Sex: Female

DRUGS (2)
  1. TOPOTECAN [Suspect]
     Indication: NEOPLASM
     Route: 048
  2. PAZOPANIB [Suspect]
     Indication: NEOPLASM
     Route: 048

REACTIONS (1)
  - PYREXIA [None]
